FAERS Safety Report 4626885-1 (Version None)
Quarter: 2005Q2

REPORT INFORMATION
  Report Type: 
  Country: None (occurrence: None)
  Receive Date: 20050405
  Receipt Date: 20050224
  Transmission Date: 20051028
  Serious: Yes (Hospitalization, Disabling)
  Sender: FDA-Public Use
  Company Number: CH-BRISTOL-MYERS SQUIBB COMPANY-12877635

PATIENT
  Age: 50 Year
  Sex: Male

DRUGS (7)
  1. REYATAZ [Suspect]
     Indication: HIV INFECTION
     Route: 048
     Dates: start: 20041101, end: 20050201
  2. RITONAVIR [Suspect]
     Dates: start: 20041101, end: 20050201
  3. TENOFOVIR [Suspect]
     Dates: start: 20041101, end: 20050201
  4. LAMIVUDINE [Concomitant]
     Dates: start: 20041101
  5. OXAZEPAM [Concomitant]
  6. MIRTAZAPINE [Concomitant]
  7. METHADONE HCL [Concomitant]

REACTIONS (3)
  - NEPHRITIS INTERSTITIAL [None]
  - PNEUMONIA [None]
  - RENAL FAILURE [None]
